FAERS Safety Report 8122409-5 (Version None)
Quarter: 2012Q1

REPORT INFORMATION
  Report Type: 
  Country: None (occurrence: None)
  Receive Date: 20120208
  Receipt Date: 20120201
  Transmission Date: 20120608
  Serious: Yes (Death)
  Sender: FDA-Public Use
  Company Number: JP-GLAXOSMITHKLINE-B0776530A

PATIENT
  Sex: Female

DRUGS (6)
  1. LAMICTAL [Suspect]
     Indication: TEMPORAL LOBE EPILEPSY
     Dosage: 50MG PER DAY
     Route: 048
     Dates: start: 20111114
  2. NITRAZEPAM [Concomitant]
     Dosage: 10MG PER DAY
     Route: 048
  3. PHENYTOIN SODIUM CAP [Concomitant]
     Indication: TEMPORAL LOBE EPILEPSY
     Dosage: 200MG PER DAY
     Route: 048
     Dates: start: 20110601
  4. LENDORMIN [Concomitant]
     Dosage: .25MG PER DAY
     Route: 048
  5. ZOLPIDEM [Concomitant]
     Dosage: 10MG PER DAY
     Route: 048
  6. LORAZEPAM [Concomitant]
     Dosage: .5MG PER DAY
     Route: 048

REACTIONS (1)
  - DEATH [None]
